FAERS Safety Report 22146016 (Version 1)
Quarter: 2023Q1

REPORT INFORMATION
  Report Type: Report from Study
  Country: US (occurrence: US)
  Receive Date: 20230328
  Receipt Date: 20230328
  Transmission Date: 20230418
  Serious: Yes (Hospitalization)
  Sender: FDA-Public Use
  Company Number: US-JNJFOC-20230119488

PATIENT
  Age: 64 Year
  Sex: Female
  Weight: 72.7 kg

DRUGS (2)
  1. MACITENTAN [Suspect]
     Active Substance: MACITENTAN
     Indication: Product used for unknown indication
     Route: 048
  2. VELETRI [Suspect]
     Active Substance: EPOPROSTENOL
     Indication: Pulmonary arterial hypertension
     Route: 042

REACTIONS (3)
  - Vascular device occlusion [Unknown]
  - Exposure during pregnancy [Unknown]
  - Contraindicated product administered [Unknown]

NARRATIVE: CASE EVENT DATE: 20230310
